FAERS Safety Report 22636530 (Version 2)
Quarter: 2023Q2

REPORT INFORMATION
  Report Type: Spontaneous
  Country: US (occurrence: US)
  Receive Date: 20230623
  Receipt Date: 20230628
  Transmission Date: 20230722
  Serious: No
  Sender: FDA-Public Use
  Company Number: US-PFIZER INC-PV202300107687

PATIENT
  Age: 76 Year
  Sex: Female

DRUGS (2)
  1. BRAFTOVI [Suspect]
     Active Substance: ENCORAFENIB
     Indication: Colon cancer
     Dosage: 300 MG, DAILY (TAKE 4 - 75 MG CAPSULES DAILY FOR TOTAL DOSE OF 300 MG DAILY)
     Route: 048
  2. PANITUMUMAB [Suspect]
     Active Substance: PANITUMUMAB
     Indication: Colon cancer
     Dosage: UNK, CYCLIC (PANITUMUMAB D1,15 + ENCORAFENIB Q28D CYCLE LENGTH: 28 NUMBER CYCLES: 12)

REACTIONS (2)
  - Neoplasm progression [Unknown]
  - Off label use [Unknown]
